FAERS Safety Report 5403865-X (Version None)
Quarter: 2007Q3

REPORT INFORMATION
  Report Type: 
  Country: None (occurrence: None)
  Receive Date: 20070802
  Receipt Date: 20070726
  Transmission Date: 20080115
  Serious: Yes (Other)
  Sender: FDA-Public Use
  Company Number: US-AVENTIS-200715419US

PATIENT
  Sex: Female

DRUGS (1)
  1. APIDRA [Suspect]
     Dosage: DOSE: VIA PUMP

REACTIONS (2)
  - DIABETIC KETOACIDOSIS [None]
  - HYPERGLYCAEMIA [None]
